FAERS Safety Report 5619834-0 (Version None)
Quarter: 2008Q1

REPORT INFORMATION
  Report Type: 
  Country: None (occurrence: None)
  Receive Date: 20080208
  Receipt Date: 20080130
  Transmission Date: 20080703
  Serious: Yes (Death, Hospitalization)
  Sender: FDA-Public Use
  Company Number: DE-JNJFOC-20070600128

PATIENT
  Age: 56 Year
  Sex: Female

DRUGS (13)
  1. REMICADE [Suspect]
     Route: 042
  2. REMICADE [Suspect]
     Route: 042
  3. REMICADE [Suspect]
     Indication: RHEUMATOID ARTHRITIS
     Route: 042
  4. METHOTREXATE [Suspect]
     Indication: RHEUMATOID ARTHRITIS
  5. RITUXIMAB [Suspect]
     Indication: DRUG USE FOR UNKNOWN INDICATION
  6. LEFLUNOMIDE [Concomitant]
  7. METYSOLON [Concomitant]
  8. VOLTREN [Concomitant]
  9. MOBIC [Concomitant]
  10. RAMIPRIL [Concomitant]
  11. CALCIUM D3 [Concomitant]
  12. FORTEO [Concomitant]
  13. FOLCUR [Concomitant]

REACTIONS (6)
  - ARTHRALGIA [None]
  - CATARACT OPERATION [None]
  - LOCALISED INFECTION [None]
  - MULTI-ORGAN FAILURE [None]
  - MYALGIA [None]
  - STAPHYLOCOCCAL SEPSIS [None]
